FAERS Safety Report 24858115 (Version 2)
Quarter: 2025Q1

REPORT INFORMATION
  Report Type: Spontaneous
  Country: US (occurrence: US)
  Receive Date: 20250117
  Receipt Date: 20250320
  Transmission Date: 20250409
  Serious: No
  Sender: SANOFI AVENTIS
  Company Number: US-SA-2025SA012841

PATIENT
  Age: 63 Year
  Sex: Female

DRUGS (1)
  1. DUPIXENT [Suspect]
     Active Substance: DUPILUMAB
     Indication: Eczema
     Dosage: 300 MG, QOW
     Route: 058
     Dates: start: 20241212

REACTIONS (11)
  - Hot flush [Recovered/Resolved]
  - Arthritis [Unknown]
  - Arthralgia [Unknown]
  - Joint stiffness [Unknown]
  - Skin abrasion [Unknown]
  - Eye swelling [Unknown]
  - Eye irritation [Unknown]
  - Injection site pruritus [Unknown]
  - Pruritus [Recovered/Resolved]
  - Therapeutic response shortened [Recovered/Resolved]
  - Off label use [Unknown]

NARRATIVE: CASE EVENT DATE: 20241212
